FAERS Safety Report 5279038-0 (Version None)
Quarter: 2007Q1

REPORT INFORMATION
  Report Type: 
  Country: None (occurrence: None)
  Receive Date: 20070328
  Receipt Date: 20061208
  Transmission Date: 20070707
  Serious: No
  Sender: FDA-Public Use
  Company Number: US-AMGEN-US202908

PATIENT
  Sex: Female

DRUGS (3)
  1. NEULASTA [Suspect]
     Indication: CHEMOTHERAPY
     Route: 065
     Dates: start: 20061126
  2. TOPOTECAN [Concomitant]
     Route: 065
  3. CISPLATIN [Concomitant]
     Route: 065

REACTIONS (4)
  - COUGH [None]
  - FEBRILE NEUTROPENIA [None]
  - FUNGAEMIA [None]
  - PNEUMONIA [None]
